FAERS Safety Report 23730388 (Version 1)
Quarter: 2024Q2

REPORT INFORMATION
  Report Type: Spontaneous
  Country: FR (occurrence: FR)
  Receive Date: 20240411
  Receipt Date: 20240411
  Transmission Date: 20240716
  Serious: Yes (Other)
  Sender: FDA-Public Use
  Company Number: None

PATIENT
  Age: 46 Year
  Sex: Male
  Weight: 80 kg

DRUGS (11)
  1. OXALIPLATIN [Suspect]
     Active Substance: OXALIPLATIN
     Indication: Pancreatic carcinoma metastatic
     Dates: start: 20230227, end: 20230620
  2. KETOCONAZOLE [Concomitant]
     Active Substance: KETOCONAZOLE
  3. EMEND [Concomitant]
     Active Substance: APREPITANT
  4. IPRATROPIUM BROMIDE [Concomitant]
     Active Substance: IPRATROPIUM BROMIDE\IPRATROPIUM BROMIDE ANHYDROUS
  5. SOLUPRED [Concomitant]
  6. TETRALYSAL [Concomitant]
  7. PANTOPRAZOLE [Concomitant]
     Active Substance: PANTOPRAZOLE
  8. ALBUTEROL [Concomitant]
     Active Substance: ALBUTEROL
  9. INNOHEP [Concomitant]
     Active Substance: TINZAPARIN SODIUM
  10. CLOBETASOL [Concomitant]
     Active Substance: CLOBETASOL
  11. FLUOROURACIL [Concomitant]
     Active Substance: FLUOROURACIL
     Dosage: 50 MG/ML

REACTIONS (2)
  - Hypersensitivity [Recovered/Resolved]
  - Oxygen saturation decreased [Recovered/Resolved]

NARRATIVE: CASE EVENT DATE: 20230620
